FAERS Safety Report 7086607-4 (Version None)
Quarter: 2010Q4

REPORT INFORMATION
  Report Type: 
  Country: None (occurrence: None)
  Receive Date: 20101105
  Receipt Date: 20101007
  Transmission Date: 20110411
  Serious: No
  Sender: FDA-Public Use
  Company Number: US-TYCO HEALTHCARE/MALLINCKRODT-T201002104

PATIENT
  Sex: Female
  Weight: 70.295 kg

DRUGS (4)
  1. PENNSAID [Suspect]
     Indication: NECK PAIN
     Dosage: 10 GTT, QAM AND QPM
     Route: 061
  2. PRAVASTATIN [Concomitant]
     Indication: BLOOD CHOLESTEROL INCREASED
     Dosage: UNK
     Route: 048
  3. VITAMINS                           /90003601/ [Concomitant]
     Indication: SUPPLEMENTATION THERAPY
     Dosage: UNK
     Route: 048
  4. NORVASC [Concomitant]
     Indication: HYPERTENSION
     Dosage: UNK
     Route: 048

REACTIONS (2)
  - DRUG EFFECT DECREASED [None]
  - JOINT SWELLING [None]
